FAERS Safety Report 9196752 (Version 7)
Quarter: 2013Q2

REPORT INFORMATION
  Report Type: Spontaneous
  Country: JP (occurrence: JP)
  Receive Date: 20130328
  Receipt Date: 20130423
  Transmission Date: 20140414
  Serious: Yes (Hospitalization)
  Sender: FDA-Public Use
  Company Number: JP-VERTEX PHARMACEUTICALS INC.-2013-004184

PATIENT
  Age: 69 Year
  Sex: Female

DRUGS (6)
  1. TELAVIC [Suspect]
     Indication: CHRONIC HEPATITIS C
     Dosage: 1500 MG, QD
     Route: 048
     Dates: start: 20130215, end: 20130322
  2. PEGINTRON [Concomitant]
     Dosage: 1.5 ?G/KG, QW
     Route: 058
     Dates: start: 20130215
  3. REBETOL [Concomitant]
     Dosage: 400 MG, QD
     Route: 048
     Dates: start: 20130215, end: 20130322
  4. REBETOL [Concomitant]
     Dosage: 200 MG, QD
     Route: 048
     Dates: start: 20130401
  5. REBETOL [Concomitant]
     Dosage: 400 MG, QD
     Route: 048
     Dates: start: 20130403
  6. AMLODIPINE [Concomitant]
     Dosage: 2.5 MG, QD
     Route: 048

REACTIONS (2)
  - Erythema multiforme [Recovered/Resolved]
  - Rash [Recovered/Resolved]
